FAERS Safety Report 7299286-8 (Version None)
Quarter: 2011Q1

REPORT INFORMATION
  Report Type: 
  Country: None (occurrence: None)
  Receive Date: 20110217
  Receipt Date: 20110204
  Transmission Date: 20110831
  Serious: Yes (Other)
  Sender: FDA-Public Use
  Company Number: CA-ELI_LILLY_AND_COMPANY-CA201012001208

PATIENT
  Sex: Female

DRUGS (12)
  1. MICRO-K [Concomitant]
     Dosage: 16 MEQ, 2/D
  2. LORAZEPAM [Concomitant]
     Dosage: 2 MG, EACH EVENING
  3. CITALOPRAM [Concomitant]
     Indication: DEPRESSION
     Dosage: 20 MG, DAILY (1/D)
  4. FUROSEMIDE [Concomitant]
     Dosage: 20 MG, EACH EVENING
  5. ADCIRCA [Suspect]
     Indication: PULMONARY ARTERIAL HYPERTENSION
     Dosage: 40 MG, DAILY (1/D)
     Route: 048
     Dates: end: 20101109
  6. PLAVIX [Concomitant]
     Indication: CORONARY ARTERY BYPASS
     Dosage: 75 MG, DAILY (1/D)
     Dates: start: 20090401
  7. ELTROXIN [Concomitant]
     Dosage: 50 UG, DAILY (1/D)
  8. FUROSEMIDE [Concomitant]
     Dosage: 40 MG, EACH MORNING
  9. LIPITOR [Concomitant]
     Dosage: 40 D/F, UNK
  10. HYDROXYUREA [Concomitant]
     Dosage: 200 MG, 2/D
  11. ASPIRIN [Concomitant]
     Dosage: 81 MG, DAILY (1/D)
  12. ALLOPURINOL [Concomitant]
     Dosage: 100 MG, DAILY (1/D)

REACTIONS (4)
  - HEADACHE [None]
  - PRESYNCOPE [None]
  - ABDOMINAL DISCOMFORT [None]
  - BLOOD PRESSURE DECREASED [None]
